FAERS Safety Report 9346454 (Version 3)
Quarter: 2013Q3

REPORT INFORMATION
  Report Type: Spontaneous
  Country: US (occurrence: US)
  Receive Date: 20130613
  Receipt Date: 20130726
  Transmission Date: 20140515
  Serious: Yes (Disabling)
  Sender: FDA-Public Use
  Company Number: US-ACTAVIS-2013-04268

PATIENT
  Sex: Male
  Weight: 84 kg

DRUGS (4)
  1. CARBIDOPA/LEVODOPA (AELLC) [Suspect]
     Indication: PARKINSON^S DISEASE
     Dosage: 25/250MG, 1 TAB, 4 TIMES DAILY
     Route: 048
     Dates: start: 2012
  2. CARBIDOPA/LEVODOPA (AELLC) [Suspect]
     Dosage: 25/100MG, 1 TAB, 4 TIMES DAILY
     Route: 048
  3. CARBIDOPA/LEVODOPA (AELLC) [Suspect]
     Dosage: 25/250MG, 1 TAB, 4 TIMES DAILY
     Route: 048
     Dates: start: 2012
  4. ENTACAPONE [Concomitant]
     Indication: PARKINSON^S DISEASE
     Dosage: 200 MG, 1 TAB 4 TIMES DAILY
     Route: 048

REACTIONS (9)
  - Walking aid user [Not Recovered/Not Resolved]
  - Somnolence [Not Recovered/Not Resolved]
  - Rhinorrhoea [Not Recovered/Not Resolved]
  - Decreased activity [Not Recovered/Not Resolved]
  - Fatigue [Not Recovered/Not Resolved]
  - Dyskinesia [Not Recovered/Not Resolved]
  - Drug ineffective [Not Recovered/Not Resolved]
  - Balance disorder [Not Recovered/Not Resolved]
  - Gambling [Not Recovered/Not Resolved]
